FAERS Safety Report 22672533 (Version 4)
Quarter: 2024Q3

REPORT INFORMATION
  Report Type: Spontaneous
  Country: US (occurrence: US)
  Receive Date: 20230705
  Receipt Date: 20240826
  Transmission Date: 20241016
  Serious: Yes (Other)
  Sender: VERTEX
  Company Number: US-VERTEX PHARMACEUTICALS-2022-016067

PATIENT
  Age: 32 Year
  Sex: Male
  Weight: 81 kg

DRUGS (9)
  1. TRIKAFTA [Suspect]
     Active Substance: ELEXACAFTOR\IVACAFTOR\TEZACAFTOR
     Indication: Cystic fibrosis
     Dosage: 2 ORANGE TABS IN AM; 1 BLUE TAB IN PM
     Route: 048
     Dates: start: 20210504
  2. TRIKAFTA [Suspect]
     Active Substance: ELEXACAFTOR\IVACAFTOR\TEZACAFTOR
     Dosage: SWITCHED DOSES (2 ORANGE TABS IN PM; 1 BLUE TAB IN AM)
     Route: 048
     Dates: start: 202206
  3. TRIKAFTA [Suspect]
     Active Substance: ELEXACAFTOR\IVACAFTOR\TEZACAFTOR
     Dosage: 1 ORANGE TABLET, EVERY MORNING
     Route: 048
     Dates: start: 202206
  4. TRIKAFTA [Suspect]
     Active Substance: ELEXACAFTOR\IVACAFTOR\TEZACAFTOR
     Dosage: 1 ORANGE TABLET EVERY OTHER DAY ALTERNATING WITH 1 BLUE TABLET ON OTHER DAYS
     Route: 048
     Dates: start: 202208
  5. TRIKAFTA [Suspect]
     Active Substance: ELEXACAFTOR\IVACAFTOR\TEZACAFTOR
     Dosage: REGULAR DOSAGE REGIMEN
     Route: 048
     Dates: start: 2023, end: 2023
  6. TRIKAFTA [Suspect]
     Active Substance: ELEXACAFTOR\IVACAFTOR\TEZACAFTOR
     Dosage: ONE ORANGE TAB EVERY DAY
     Route: 048
     Dates: start: 20230605, end: 2023
  7. TRIKAFTA [Suspect]
     Active Substance: ELEXACAFTOR\IVACAFTOR\TEZACAFTOR
     Dosage: 1 ORANGE TABLET IN THE MORNING AND 1 BLUE TABLET IN THE EVENING
     Route: 048
     Dates: start: 2023, end: 2023
  8. TRIKAFTA [Suspect]
     Active Substance: ELEXACAFTOR\IVACAFTOR\TEZACAFTOR
     Dosage: 1 ORANGE TABLET EVERY OTHER DAY ALTERNATING WITH 1 BLUE TABLET ON OTHER DAYS
     Route: 048
     Dates: start: 2023
  9. TRIKAFTA [Suspect]
     Active Substance: ELEXACAFTOR\IVACAFTOR\TEZACAFTOR
     Dosage: 1 ORANGE TABLET EVERY OTHER DAY ALTERNATING WITH 1 BLUE TABLET ON OTHER DAY
     Route: 048

REACTIONS (14)
  - Mood swings [Recovering/Resolving]
  - Appendicectomy [Unknown]
  - Mental disorder [Unknown]
  - Tremor [Unknown]
  - Nightmare [Unknown]
  - Abnormal behaviour [Unknown]
  - Emotional disorder [Unknown]
  - Anger [Unknown]
  - Anxiety [Unknown]
  - Pulmonary congestion [Unknown]
  - Insomnia [Unknown]
  - Procedural pain [Not Recovered/Not Resolved]
  - Depression [Not Recovered/Not Resolved]
  - Headache [Unknown]

NARRATIVE: CASE EVENT DATE: 20221001
